FAERS Safety Report 7758869-9 (Version None)
Quarter: 2011Q3

REPORT INFORMATION
  Report Type: 
  Country: None (occurrence: None)
  Receive Date: 20110919
  Receipt Date: 20110907
  Transmission Date: 20111222
  Serious: Yes (Hospitalization)
  Sender: FDA-Public Use
  Company Number: US-BAYER-2011-013455

PATIENT
  Age: 26 Year
  Sex: Female
  Weight: 108.84 kg

DRUGS (4)
  1. YAZ [Suspect]
     Indication: CONTRACEPTION
     Dosage: UNK
     Route: 048
     Dates: start: 20090901, end: 20091101
  2. DICLOFENAC SODIUM [Concomitant]
  3. DICLOFENAC SODIUM [Concomitant]
  4. CHLORZOXAZONE [Concomitant]

REACTIONS (9)
  - CHOLELITHIASIS [None]
  - ANXIETY [None]
  - GALLBLADDER DISORDER [None]
  - PAIN [None]
  - CHOLECYSTITIS ACUTE [None]
  - INJURY [None]
  - CHOLECYSTITIS CHRONIC [None]
  - EMOTIONAL DISTRESS [None]
  - GENERAL PHYSICAL HEALTH DETERIORATION [None]
